FAERS Safety Report 25150468 (Version 1)
Quarter: 2025Q2

REPORT INFORMATION
  Report Type: Report from Study
  Country: US (occurrence: US)
  Receive Date: 20250402
  Receipt Date: 20250402
  Transmission Date: 20250717
  Serious: Yes (Other)
  Sender: SANDOZ
  Company Number: US-002147023-NVSC2023US140101

PATIENT
  Age: 12 Year
  Sex: Male

DRUGS (2)
  1. OMNITROPE [Suspect]
     Active Substance: SOMATROPIN
     Indication: Hypopituitarism
     Dosage: 1.6 ML, QD
     Route: 058
     Dates: start: 20230404
  2. OMNITROPE [Suspect]
     Active Substance: SOMATROPIN
     Dosage: 1.6 MG, QD
     Route: 003
     Dates: start: 20230421

REACTIONS (8)
  - Attention deficit hyperactivity disorder [Unknown]
  - Condition aggravated [Unknown]
  - Flatulence [Not Recovered/Not Resolved]
  - Bowel movement irregularity [Not Recovered/Not Resolved]
  - Hyperphagia [Not Recovered/Not Resolved]
  - Back pain [Not Recovered/Not Resolved]
  - Irritability [Unknown]
  - Sports injury [Unknown]

NARRATIVE: CASE EVENT DATE: 20230401
